FAERS Safety Report 9253018 (Version 2)
Quarter: 2013Q2

REPORT INFORMATION
  Report Type: Spontaneous
  Country: DE (occurrence: DE)
  Receive Date: 20130424
  Receipt Date: 20130531
  Transmission Date: 20140414
  Serious: Yes (Hospitalization, Other)
  Sender: FDA-Public Use
  Company Number: DE-ELI_LILLY_AND_COMPANY-DE201304004406

PATIENT
  Sex: Female

DRUGS (8)
  1. FORSTEO [Suspect]
     Indication: OSTEOPOROSIS
     Dosage: UNK, QD
     Route: 058
     Dates: start: 20120113
  2. NOVAMINSULFON [Concomitant]
  3. TARDYFERON [Concomitant]
  4. ASA [Concomitant]
  5. ATORVASTATIN [Concomitant]
  6. BISOPROLOL [Concomitant]
  7. CALCIVIT [Concomitant]
  8. CLOPIDOGREL [Concomitant]

REACTIONS (1)
  - Anaemia [Not Recovered/Not Resolved]
